FAERS Safety Report 5584240-4 (Version None)
Quarter: 2008Q1

REPORT INFORMATION
  Report Type: 
  Country: None (occurrence: None)
  Receive Date: 20080108
  Receipt Date: 20080103
  Transmission Date: 20080703
  Serious: Yes (Other)
  Sender: FDA-Public Use
  Company Number: B0359660A

PATIENT
  Age: 50 Year
  Sex: Female

DRUGS (5)
  1. SEROXAT [Suspect]
     Route: 065
     Dates: start: 19990507
  2. CHLORDIAZEPOXIDE [Concomitant]
     Dates: start: 20020508
  3. DIAZEPAM [Concomitant]
     Dates: start: 20030625
  4. LORAZEPAM [Concomitant]
     Dates: start: 20020727
  5. PROZAC [Concomitant]
     Dates: start: 19980319

REACTIONS (13)
  - AGITATION [None]
  - CONFUSIONAL STATE [None]
  - DISTURBANCE IN ATTENTION [None]
  - DRUG WITHDRAWAL SYNDROME [None]
  - ELECTRIC SHOCK [None]
  - FATIGUE [None]
  - HYPERHIDROSIS [None]
  - INFLUENZA [None]
  - INSOMNIA [None]
  - LETHARGY [None]
  - MEMORY IMPAIRMENT [None]
  - SUICIDAL BEHAVIOUR [None]
  - TREMOR [None]
